FAERS Safety Report 17850088 (Version 1)
Quarter: 2020Q2

REPORT INFORMATION
  Report Type: Spontaneous
  Country: US (occurrence: US)
  Receive Date: 20200602
  Receipt Date: 20200602
  Transmission Date: 20200714
  Serious: Yes (Death)
  Sender: FDA-Public Use
  Company Number: US-BAYER-2020-100390

PATIENT
  Age: 74 Year
  Sex: Female

DRUGS (8)
  1. FLUOXETINE [Suspect]
     Active Substance: FLUOXETINE HYDROCHLORIDE
  2. PRAVASTATIN. [Suspect]
     Active Substance: PRAVASTATIN
  3. DILTIAZEM. [Suspect]
     Active Substance: DILTIAZEM
  4. RANITIDINE. [Suspect]
     Active Substance: RANITIDINE
  5. OMEPRAZOLE. [Suspect]
     Active Substance: OMEPRAZOLE
     Dosage: UNK
  6. IBUPROFEN. [Suspect]
     Active Substance: IBUPROFEN
  7. LISINOPRIL. [Suspect]
     Active Substance: LISINOPRIL
  8. ACETYLSALICYLIC ACID [Suspect]
     Active Substance: ASPIRIN

REACTIONS (1)
  - Intentional overdose [Fatal]
